FAERS Safety Report 4753227-3 (Version None)
Quarter: 2005Q3

REPORT INFORMATION
  Report Type: 
  Country: None (occurrence: None)
  Receive Date: 20050826
  Receipt Date: 20050818
  Transmission Date: 20060218
  Serious: Yes (Other)
  Sender: FDA-Public Use
  Company Number: FR-ABBOTT-05P-056-0308604-00

PATIENT
  Sex: Female

DRUGS (12)
  1. DEPAKOTE [Suspect]
     Indication: BIPOLAR DISORDER
     Route: 048
     Dates: start: 20050216
  2. DEPAKOTE [Suspect]
     Route: 048
     Dates: start: 20050610
  3. VALPROMIDE [Suspect]
     Indication: BIPOLAR DISORDER
     Route: 048
     Dates: start: 20030101, end: 20050201
  4. PENFLURIDOL [Suspect]
     Indication: PSYCHOTIC DISORDER
     Route: 048
     Dates: end: 20050121
  5. RISPERIDONE [Suspect]
     Indication: DRUG USE FOR UNKNOWN INDICATION
     Route: 065
  6. AMLODIPINE BESILATE [Concomitant]
     Indication: HYPERTENSION
     Route: 048
     Dates: start: 20041001
  7. AMLODIPINE BESILATE [Concomitant]
     Indication: ANGINA PECTORIS
  8. ALPRAZOLAM [Concomitant]
     Indication: ANXIETY
     Route: 048
     Dates: start: 20041110
  9. ALPRAZOLAM [Concomitant]
     Route: 048
  10. TRIHEXYPHENIDYL HCL [Concomitant]
     Indication: DRUG USE FOR UNKNOWN INDICATION
     Route: 048
     Dates: start: 20050211
  11. ZOLPIDEM [Concomitant]
     Indication: DRUG USE FOR UNKNOWN INDICATION
     Route: 048
     Dates: start: 20040922
  12. BISOPROLOL [Concomitant]
     Indication: HYPERTENSION
     Route: 048
     Dates: start: 20050307

REACTIONS (8)
  - ANXIETY [None]
  - CONFUSIONAL STATE [None]
  - DISORIENTATION [None]
  - DRUG LEVEL DECREASED [None]
  - DRUG LEVEL INCREASED [None]
  - ENCEPHALOPATHY [None]
  - EXTRAPYRAMIDAL DISORDER [None]
  - LETHARGY [None]
